FAERS Safety Report 12388981 (Version 1)
Quarter: 2016Q2

REPORT INFORMATION
  Report Type: Spontaneous
  Country: US (occurrence: US)
  Receive Date: 20160520
  Receipt Date: 20160520
  Transmission Date: 20160815
  Serious: No
  Sender: FDA-Public Use
  Company Number: US-TEVA-643287USA

PATIENT
  Age: 37 Year
  Sex: Female

DRUGS (5)
  1. VANDAZOLE [Suspect]
     Active Substance: METRONIDAZOLE
     Indication: VAGINAL DISCHARGE
     Dosage: 37.5 MG, QD, INTRAVAGINAL
     Route: 067
     Dates: start: 20160123, end: 20160127
  2. MULTIVITAMIN [Concomitant]
     Active Substance: VITAMINS
  3. OMEGA-3 ACIDS [Concomitant]
     Active Substance: OMEGA-3 FATTY ACIDS
  4. MELATONIN [Concomitant]
     Active Substance: MELATONIN
  5. LABETALOL [Concomitant]
     Active Substance: LABETALOL\LABETALOL HYDROCHLORIDE

REACTIONS (2)
  - Bacterial vaginosis [Unknown]
  - Vaginal discharge [Not Recovered/Not Resolved]

NARRATIVE: CASE EVENT DATE: 20160129
